FAERS Safety Report 8320558-X (Version None)
Quarter: 2012Q2

REPORT INFORMATION
  Report Type: 
  Country: None (occurrence: None)
  Receive Date: 20120430
  Receipt Date: 20120424
  Transmission Date: 20120825
  Serious: Yes (Other)
  Sender: FDA-Public Use
  Company Number: BR-PFIZER INC-2012098598

PATIENT
  Age: 66 Year
  Sex: Female

DRUGS (4)
  1. DEPAKOTE [Concomitant]
     Indication: MIGRAINE
     Dosage: 1 TABLET (UNKNOWN DOSE) DAILY
  2. CYMBALTA [Concomitant]
     Indication: DEPRESSION
     Dosage: 1 TABLET (UNKNOWN DOSE) DAILY
     Dates: start: 20000419
  3. LYRICA [Suspect]
     Indication: PAIN IN EXTREMITY
     Dosage: 75 MG (ONE CAPSULE), 2X/DAY
     Route: 048
     Dates: start: 20110101, end: 20120301
  4. LYRICA [Suspect]
     Dosage: 150 MG (TWO CAPSULED OF 75MG OR ONE CAPSULE OF 150MG), 1X/DAY
     Route: 048
     Dates: start: 20120301, end: 20120418

REACTIONS (4)
  - PAIN [None]
  - SOMNOLENCE [None]
  - INTERVERTEBRAL DISC PROTRUSION [None]
  - DAYDREAMING [None]
